FAERS Safety Report 8846568 (Version 2)
Quarter: 2012Q4

REPORT INFORMATION
  Report Type: 
  Country: US (occurrence: US)
  Receive Date: 20121017
  Receipt Date: 20121025
  Transmission Date: 20130627
  Serious: Yes (Other)
  Sender: FDA-Public Use
  Company Number: US-ROCHE-1048029

PATIENT
  Age: 16 Year
  Sex: Female
  Weight: 54.48 kg

DRUGS (2)
  1. ACCUTANE [Suspect]
     Indication: ACNE
     Route: 065
     Dates: start: 1998
  2. ACCUTANE [Suspect]
     Route: 065
     Dates: start: 199906, end: 200111

REACTIONS (4)
  - Colitis ulcerative [Unknown]
  - Anxiety [Unknown]
  - Inflammatory bowel disease [Unknown]
  - Dry skin [Unknown]
